FAERS Safety Report 18748527 (Version 1)
Quarter: 2021Q1

REPORT INFORMATION
  Report Type: Spontaneous
  Country: JP (occurrence: JP)
  Receive Date: 20210115
  Receipt Date: 20210115
  Transmission Date: 20210419
  Serious: Yes (Other)
  Sender: FDA-Public Use
  Company Number: JP-009507513-2012JPN002444J

PATIENT
  Age: 80 Year
  Sex: Female

DRUGS (2)
  1. CUBICIN [Suspect]
     Active Substance: DAPTOMYCIN
     Indication: WOUND INFECTION STAPHYLOCOCCAL
     Dosage: 4 MILLIGRAM/KILOGRAM, QD
     Route: 041
     Dates: start: 20201112, end: 20201208
  2. CUBICIN [Suspect]
     Active Substance: DAPTOMYCIN
     Dosage: 4 MILLIGRAM/KILOGRAM, QD
     Route: 041
     Dates: start: 20201211, end: 20201220

REACTIONS (1)
  - Staphylococcal infection [Unknown]

NARRATIVE: CASE EVENT DATE: 202012
